FAERS Safety Report 20136935 (Version 1)
Quarter: 2021Q4

REPORT INFORMATION
  Report Type: Spontaneous
  Country: DE (occurrence: DE)
  Receive Date: 20211201
  Receipt Date: 20211201
  Transmission Date: 20220304
  Serious: Yes (Other)
  Sender: FDA-Public Use
  Company Number: DE-NOVARTISPH-NVSC2021DE271813

PATIENT
  Sex: Female

DRUGS (1)
  1. ESTRADIOL\NORETHINDRONE ACETATE [Suspect]
     Active Substance: ESTRADIOL\NORETHINDRONE ACETATE
     Indication: Product used for unknown indication
     Dosage: UNK 40 (UNITS NOT REPORTED)
     Route: 065

REACTIONS (1)
  - Cerebrovascular accident [Unknown]
